FAERS Safety Report 5281225-2 (Version None)
Quarter: 2007Q1

REPORT INFORMATION
  Report Type: 
  Country: None (occurrence: None)
  Receive Date: 20070323
  Receipt Date: 20070309
  Transmission Date: 20070707
  Serious: Yes (Other)
  Sender: FDA-Public Use
  Company Number: 2007S1002146

PATIENT
  Sex: Female

DRUGS (15)
  1. MERCAPTAMINE BITARTRATE (MERCAPTAMINE BITARTRATE) [Suspect]
     Indication: CYSTINOSIS
     Dosage: SEE IMAGE
     Route: 048
     Dates: end: 20040610
  2. MERCAPTAMINE BITARTRATE (MERCAPTAMINE BITARTRATE) [Suspect]
     Indication: CYSTINOSIS
     Dosage: SEE IMAGE
     Route: 048
     Dates: start: 19970701
  3. MERCAPTAMINE BITARTRATE (MERCAPTAMINE BITARTRATE) [Suspect]
     Indication: CYSTINOSIS
     Dosage: SEE IMAGE
     Route: 048
     Dates: start: 20051004
  4. NEORAL (CON.) [Concomitant]
  5. CELLCEPT (CON.) [Concomitant]
  6. LEVOTHYROX (CON.) [Concomitant]
  7. DIFFU-K (CON.) [Concomitant]
  8. OROCAL /00108001/ (CON.) [Concomitant]
  9. CREON /00014701/ (CON.) [Concomitant]
  10. STIMYCINE (CON.) [Concomitant]
  11. LANTUS (CON.) [Concomitant]
  12. ALCOOL MODIFIE (CON.) [Concomitant]
  13. EMLAPATCH (CON.) [Concomitant]
  14. NEOROCORMON (CON.) [Concomitant]
  15. RENAGEL /01459901/ (CON.) [Concomitant]

REACTIONS (5)
  - BLOOD CREATININE INCREASED [None]
  - BREATH ODOUR [None]
  - DIABETES MELLITUS INSULIN-DEPENDENT [None]
  - NAUSEA [None]
  - PANCREATIC INSUFFICIENCY [None]
